FAERS Safety Report 14488027 (Version 1)
Quarter: 2018Q1

REPORT INFORMATION
  Report Type: Spontaneous
  Country: US (occurrence: US)
  Receive Date: 20180205
  Receipt Date: 20180205
  Transmission Date: 20180509
  Serious: No
  Sender: FDA-Public Use
  Company Number: US-MYLANLABS-2018M1006421

PATIENT
  Sex: Male
  Weight: 86 kg

DRUGS (1)
  1. FENTANYL TRANSDERMAL SYSTEM [Suspect]
     Active Substance: FENTANYL
     Indication: PAIN
     Dosage: 75 UNK, UNK
     Route: 062

REACTIONS (3)
  - Sleep disorder [Not Recovered/Not Resolved]
  - Insomnia [Unknown]
  - Poor quality sleep [Not Recovered/Not Resolved]
